FAERS Safety Report 17360742 (Version 2)
Quarter: 2021Q2

REPORT INFORMATION
  Report Type: Spontaneous
  Country: PT (occurrence: PT)
  Receive Date: 20200203
  Receipt Date: 20210428
  Transmission Date: 20210716
  Serious: Yes (Death)
  Sender: FDA-Public Use
  Company Number: PT-BAYER-2020-017941

PATIENT
  Age: 75 Year
  Sex: Female

DRUGS (7)
  1. ESOMEPRAZOL [ESOMEPRAZOLE] [Concomitant]
     Active Substance: ESOMEPRAZOLE
  2. ESPIRONOLACTONA [Concomitant]
     Active Substance: SPIRONOLACTONE
  3. ADEMPAS [Suspect]
     Active Substance: RIOCIGUAT
     Indication: PULMONARY HYPERTENSION
     Dosage: UNK
     Dates: start: 2014
  4. FLUOXETINA [FLUOXETINE] [Concomitant]
     Active Substance: FLUOXETINE HYDROCHLORIDE
  5. FUROSEMIDA [FUROSEMIDE] [Concomitant]
     Active Substance: FUROSEMIDE
  6. ELIQUIS [Concomitant]
     Active Substance: APIXABAN
  7. FOLICIL [Concomitant]
     Active Substance: FOLIC ACID

REACTIONS (1)
  - Death [Fatal]

NARRATIVE: CASE EVENT DATE: 20200126
